FAERS Safety Report 12987300 (Version 1)
Quarter: 2016Q4

REPORT INFORMATION
  Report Type: Spontaneous
  Country: US (occurrence: US)
  Receive Date: 20161129
  Receipt Date: 20161129
  Transmission Date: 20170207
  Serious: Yes (Hospitalization)
  Sender: FDA-Public Use
  Company Number: None

PATIENT
  Age: 51 Year
  Sex: Male
  Weight: 144.5 kg

DRUGS (1)
  1. NAPROXEN. [Suspect]
     Active Substance: NAPROXEN
     Indication: PAIN
     Route: 048
     Dates: start: 20160830, end: 20161001

REACTIONS (4)
  - Jaundice [None]
  - Gastric haemorrhage [None]
  - Acute kidney injury [None]
  - Hepatic enzyme increased [None]

NARRATIVE: CASE EVENT DATE: 20161004
